FAERS Safety Report 6289310-3 (Version None)
Quarter: 2009Q3

REPORT INFORMATION
  Report Type: 
  Country: None (occurrence: None)
  Receive Date: 20090730
  Receipt Date: 20090722
  Transmission Date: 20100115
  Serious: Yes (Hospitalization)
  Sender: FDA-Public Use
  Company Number: JP-BIOGENIDEC-2007BI016046

PATIENT
  Age: 56 Year
  Sex: Female

DRUGS (16)
  1. AVONEX [Suspect]
     Indication: RELAPSING-REMITTING MULTIPLE SCLEROSIS
     Route: 030
     Dates: start: 20070626, end: 20070702
  2. AVONEX [Suspect]
     Route: 030
     Dates: start: 20070703, end: 20070703
  3. AVONEX [Suspect]
     Route: 030
     Dates: start: 20070710
  4. TIZANIDINE HCL [Concomitant]
     Indication: MULTIPLE SCLEROSIS
     Dates: start: 20070717
  5. CYANOCOBALAMIN [Concomitant]
     Indication: PROPHYLAXIS
     Dates: start: 20070717
  6. MOBIC [Concomitant]
     Indication: PROPHYLAXIS
     Dates: start: 20070717
  7. MEVALOTIN [Concomitant]
     Indication: PROPHYLAXIS
     Dates: start: 20070717
  8. DEPAKENE [Concomitant]
     Indication: PROPHYLAXIS
     Dates: start: 20070717
  9. LANDSEN [Concomitant]
     Indication: MULTIPLE SCLEROSIS
     Dates: start: 20070717
  10. SELBEX [Concomitant]
     Indication: PROPHYLAXIS
     Dates: start: 20070717, end: 20071112
  11. MAGMITT [Concomitant]
     Indication: PROPHYLAXIS
     Dates: start: 20070717, end: 20070806
  12. GABAPEN [Concomitant]
     Indication: MULTIPLE SCLEROSIS
     Dates: start: 20070717
  13. LOXONIN [Concomitant]
     Dates: start: 20070918, end: 20080415
  14. MUCOSTA [Concomitant]
     Dates: start: 20071113
  15. TEGRETOL [Concomitant]
     Dates: start: 20090303, end: 20090601
  16. TEGRETOL [Concomitant]
     Dates: start: 20090602

REACTIONS (5)
  - ANAEMIA [None]
  - DEPRESSIVE SYMPTOM [None]
  - HYPOPROTEINAEMIA [None]
  - MULTIPLE SCLEROSIS RELAPSE [None]
  - PYREXIA [None]
